FAERS Safety Report 8077829-4 (Version None)
Quarter: 2012Q1

REPORT INFORMATION
  Report Type: 
  Country: None (occurrence: None)
  Receive Date: 20120127
  Receipt Date: 20120124
  Transmission Date: 20120608
  Serious: Yes (Death, Life-Threatening, Hospitalization)
  Sender: FDA-Public Use
  Company Number: DE-PFIZER INC-DE-WYE-G05288910

PATIENT
  Age: 61 Year
  Sex: Male
  Weight: 70 kg

DRUGS (33)
  1. FLUNITRAZEPAM [Suspect]
     Dosage: 1.0 MG, 1X/DAY
     Route: 048
     Dates: start: 20091028, end: 20091028
  2. ZIENAM [Suspect]
     Dosage: 1 G, 1X/8 HR
     Route: 042
     Dates: start: 20091028, end: 20091028
  3. POTASSIUM CHLORIDE [Suspect]
     Dosage: 1 DF, 2X/DAY
     Route: 048
     Dates: start: 20091026, end: 20091026
  4. LORAZEPAM [Suspect]
     Dosage: 1.0 MG, 4X/DAY
     Route: 048
     Dates: start: 20091020, end: 20091026
  5. LORAZEPAM [Suspect]
     Dosage: 1.0 MG, 2X/DAY
     Route: 048
     Dates: start: 20091027, end: 20091027
  6. METOPROLOL SUCCINATE [Suspect]
     Dosage: 70.75 MG, UNK
     Route: 048
     Dates: start: 20091020, end: 20091024
  7. PIPERACILLIN SODIUM/SULBACTAM SODIUM [Suspect]
     Dosage: 1.0 DF, 1X/8 HR
     Route: 042
     Dates: start: 20091025, end: 20091027
  8. NAC ^ALIUD PHARMA^ [Suspect]
     Dosage: 600.0 MG, 1X/DAY
     Route: 048
     Dates: start: 20091020, end: 20091028
  9. CARBAMAZEPINE [Suspect]
     Dosage: 200.0 MG, 3X/DAY
     Route: 048
     Dates: start: 20091020, end: 20091028
  10. SIMVASTATIN [Suspect]
     Dosage: 20.0 MG, 1X/DAY
     Route: 048
     Dates: start: 20091025, end: 20091027
  11. RAMIPRIL [Suspect]
     Dosage: 2.5 MG, 1X/DAY
     Route: 048
     Dates: start: 20091021, end: 20091024
  12. NOREPINEPHRINE BITARTRATE [Suspect]
     Dosage: 10 MG/50 ML NACL 0.9%
     Route: 051
     Dates: start: 20091028, end: 20091028
  13. POTASSIUM CHLORIDE [Suspect]
     Dosage: 2.0 DF, 2X/DAY
     Route: 048
     Dates: start: 20091025, end: 20091025
  14. EUNERPAN [Suspect]
     Dosage: 25.0 MG, 1X/DAY
     Route: 048
     Dates: start: 20091020, end: 20091027
  15. HAEMITON ^ANKERPHARM^ [Suspect]
     Dosage: 75.0 UG, 2X/DAY
     Route: 048
     Dates: start: 20091020, end: 20091024
  16. TORSEMIDE [Suspect]
     Dosage: 10.0 MG, 2X/DAY
     Route: 048
     Dates: start: 20091021, end: 20091022
  17. FUROSEMIDE [Suspect]
     Dosage: 20.0 MG,1X/8 HR
     Route: 042
     Dates: start: 20091028, end: 20091028
  18. INSULIN HUMAN [Suspect]
     Dosage: 22.0 IU, 1X/DAY
     Route: 058
     Dates: start: 20091021, end: 20091024
  19. POTASSIUM CHLORIDE [Suspect]
     Dosage: 1.0 DF, 3X/DAY
     Route: 048
     Dates: start: 20091027, end: 20091027
  20. ACETYLSALICYLIC ACID SRT [Suspect]
     Dosage: 100.0 MG, 1X/DAY
     Route: 048
     Dates: start: 20091020, end: 20091028
  21. ZOPICLONE [Suspect]
     Dosage: 7.5 MG, 1X/DAY
     Route: 048
     Dates: start: 20091020, end: 20091026
  22. TORSEMIDE [Suspect]
     Dosage: 10.0 MG, 3X/DAY
     Route: 048
     Dates: start: 20091020, end: 20091020
  23. NOREPINEPHRINE BITARTRATE [Suspect]
     Dosage: 10 MG/50 ML NACL 0.9%
     Route: 051
     Dates: start: 20091025, end: 20091025
  24. INSULIN HUMAN [Suspect]
     Dosage: 48.0 IU, 1X/DAY
     Route: 058
     Dates: start: 20091020
  25. INSULIN BASAL [Suspect]
     Dosage: 22.0 IU, 1X/DAY
     Route: 058
     Dates: start: 20091020, end: 20091021
  26. ARIXTRA [Suspect]
     Dosage: 2.5 MG, 1X/DAY
     Route: 058
     Dates: start: 20091020, end: 20091028
  27. LANSOPRAZOLE [Suspect]
     Dosage: 15.0 MG, 1X/DAY
     Route: 048
     Dates: start: 20091020, end: 20091028
  28. TORSEMIDE [Suspect]
     Dosage: 10.0 MG, 1X/DAY
     Route: 048
     Dates: start: 20091023, end: 20091026
  29. POTASSIUM CHLORIDE [Suspect]
     Dosage: 1.0 DF, 3X/DAY
     Route: 048
     Dates: start: 20091021, end: 20091023
  30. TORSEMIDE [Suspect]
     Dosage: 10.0 MG, 3X/DAY
     Route: 048
     Dates: start: 20091027, end: 20091027
  31. INSULIN HUMAN [Suspect]
     Dosage: 50.0 IU, 1X/DAY
     Route: 058
     Dates: start: 20091026, end: 20091028
  32. INSULIN HUMAN [Suspect]
     Dosage: 44.0 IU, 1X/DAY
     Route: 058
     Dates: start: 20091025, end: 20091025
  33. POTASSIUM CHLORIDE [Suspect]
     Dosage: 1.0 DF, 2X/DAY
     Route: 048
     Dates: start: 20091024, end: 20091024

REACTIONS (4)
  - RENAL FAILURE ACUTE [None]
  - RHABDOMYOLYSIS [None]
  - URINE COLOUR ABNORMAL [None]
  - SEPSIS [None]
